FAERS Safety Report 4636211-X (Version None)
Quarter: 2005Q2

REPORT INFORMATION
  Report Type: 
  Country: None (occurrence: None)
  Receive Date: 20050415
  Receipt Date: 20050406
  Transmission Date: 20051028
  Serious: Yes (Hospitalization)
  Sender: FDA-Public Use
  Company Number: PHBS2005IL04910

PATIENT
  Age: 37 Year
  Sex: Female

DRUGS (12)
  1. CARBAMAZEPINE [Suspect]
     Indication: PAIN
     Dosage: 1000 MG/DAY
  2. CARBAMAZEPINE [Suspect]
     Dosage: 600 MG/DAY
  3. CARBAMAZEPINE [Suspect]
     Dosage: 400 MG/DAY
  4. DANTROLENE [Suspect]
     Indication: MUSCLE SPASTICITY
     Dosage: 125 MG/DAY
  5. DANTROLENE [Suspect]
     Dosage: 100 MG/DAY
  6. DANTROLENE [Suspect]
     Dosage: 125 MG/DAY
  7. DANTROLENE [Suspect]
     Dosage: 25 MG/DAY
  8. OXYBUTYNIN [Suspect]
     Indication: HYPERTONIC BLADDER
     Dosage: 5 MG, BID
  9. OXYBUTYNIN [Suspect]
     Dosage: 5 MG/DAY
  10. BACLOFEN [Concomitant]
     Indication: MUSCLE SPASTICITY
     Dosage: 100 MG/DAY
  11. ATENOLOL [Concomitant]
     Indication: HYPERTENSION
     Dosage: 50 MG/DAY
  12. FLUVOXAMINE MALEATE [Concomitant]
     Indication: DEPRESSION
     Dosage: 100 MG/DAY

REACTIONS (16)
  - BALANCE DISORDER [None]
  - CONFUSIONAL STATE [None]
  - DISEASE RECURRENCE [None]
  - DIZZINESS [None]
  - DRUG INTERACTION [None]
  - DRUG LEVEL INCREASED [None]
  - DRUG TOXICITY [None]
  - DYSARTHRIA [None]
  - ELECTROENCEPHALOGRAM ABNORMAL [None]
  - HYPERTONIC BLADDER [None]
  - MUSCLE SPASTICITY [None]
  - NYSTAGMUS [None]
  - PAIN [None]
  - POLLAKIURIA [None]
  - SOMNOLENCE [None]
  - VOMITING [None]
